FAERS Safety Report 25722614 (Version 1)
Quarter: 2025Q3

REPORT INFORMATION
  Report Type: Spontaneous
  Country: US (occurrence: US)
  Receive Date: 20250825
  Receipt Date: 20250825
  Transmission Date: 20251020
  Serious: Yes (Life-Threatening, Hospitalization)
  Sender: DAIICHI
  Company Number: US-DSJP-DS-2025-160957-US

PATIENT
  Sex: Female

DRUGS (1)
  1. ENHERTU [Suspect]
     Active Substance: FAM-TRASTUZUMAB DERUXTECAN-NXKI
     Indication: Product used for unknown indication
     Dosage: 4.4 MG/KG, ONCE EVERY 3 WK
     Route: 042

REACTIONS (3)
  - Nausea [Recovering/Resolving]
  - Vomiting [Recovering/Resolving]
  - Blood creatinine increased [Recovering/Resolving]
